FAERS Safety Report 24453697 (Version 2)
Quarter: 2024Q4

REPORT INFORMATION
  Report Type: Report from Study
  Country: US (occurrence: US)
  Receive Date: 20241017
  Receipt Date: 20241018
  Transmission Date: 20250114
  Serious: No
  Sender: ROCHE
  Company Number: US-ROCHE-3324755

PATIENT
  Age: 62 Year
  Sex: Female

DRUGS (3)
  1. RITUXAN [Suspect]
     Active Substance: RITUXIMAB
     Indication: Chronic inflammatory demyelinating polyradiculoneuropathy
     Dosage: THEN FOR EVERY 6 MONTHS
     Route: 042
     Dates: start: 20220609, end: 20230609
  2. RITUXAN [Suspect]
     Active Substance: RITUXIMAB
     Indication: Subacute cutaneous lupus erythematosus
  3. HUMAN IMMUNOGLOBULIN G [Concomitant]
     Active Substance: HUMAN IMMUNOGLOBULIN G

REACTIONS (2)
  - Off label use [Unknown]
  - No adverse event [Unknown]
